FAERS Safety Report 7681322 (Version 5)
Quarter: 2012Q4

REPORT INFORMATION
  Report Type: 
  Country: US (occurrence: US)
  Receive Date: 20101124
  Receipt Date: 20121109
  Transmission Date: 20130627
  Serious: Yes (Hospitalization, Other)
  Sender: FDA-Public Use
  Company Number: US-BIOGENIDEC-2010BI040068

PATIENT
  Age: 47 Year
  Sex: Male
  Weight: 89 kg

DRUGS (6)
  1. TYSABRI [Suspect]
     Indication: MULTIPLE SCLEROSIS
     Route: 042
     Dates: start: 20070222, end: 20101018
  2. HYTRIN [Concomitant]
  3. LEXAPRO [Concomitant]
  4. MEPERIDINE [Concomitant]
  5. NORVASC [Concomitant]
  6. TRICOR [Concomitant]

REACTIONS (5)
  - Pulmonary embolism [Recovered/Resolved]
  - Tonsil cancer [Not Recovered/Not Resolved]
  - Metastatic neoplasm [Not Recovered/Not Resolved]
  - Incision site pain [Not Recovered/Not Resolved]
  - Tonsillar disorder [Unknown]
